FAERS Safety Report 18557480 (Version 1)
Quarter: 2020Q4

REPORT INFORMATION
  Report Type: Other
  Country: US (occurrence: US)
  Receive Date: 20201130
  Receipt Date: 20201130
  Transmission Date: 20210114
  Serious: Yes (Other)
  Sender: FDA-Public Use
  Company Number: US-ROCHE-2722616

PATIENT
  Age: 47 Year
  Sex: Male
  Weight: 78 kg

DRUGS (2)
  1. TOCILIZUMAB. [Suspect]
     Active Substance: TOCILIZUMAB
     Indication: COVID-19
     Route: 042
  2. REMDESIVIR. [Concomitant]
     Active Substance: REMDESIVIR

REACTIONS (9)
  - Alanine aminotransferase increased [Recovered/Resolved]
  - Pneumonia klebsiella [Unknown]
  - Off label use [Unknown]
  - Urinary tract infection [Unknown]
  - Acinetobacter bacteraemia [Unknown]
  - Bacteraemia [Unknown]
  - Aspartate aminotransferase increased [Recovered/Resolved]
  - Intentional product use issue [Unknown]
  - Pneumonia [Unknown]
